FAERS Safety Report 8498996-4 (Version None)
Quarter: 2012Q3

REPORT INFORMATION
  Report Type: 
  Country: None (occurrence: None)
  Receive Date: 20120710
  Receipt Date: 20120705
  Transmission Date: 20120928
  Serious: No
  Sender: FDA-Public Use
  Company Number: US-BIOGENIDEC-2012BI023775

PATIENT
  Age: 51 Year
  Sex: Female

DRUGS (3)
  1. TYSABRI [Suspect]
     Indication: MULTIPLE SCLEROSIS
     Route: 042
     Dates: start: 20050221
  2. TYSABRI [Suspect]
     Route: 042
     Dates: start: 20060828, end: 20070717
  3. TYSABRI [Suspect]
     Route: 042
     Dates: start: 20080130

REACTIONS (3)
  - MUSCLE SPASMS [None]
  - MALAISE [None]
  - MULTIPLE SCLEROSIS RELAPSE [None]
